FAERS Safety Report 20823828 (Version 1)
Quarter: 2022Q2

REPORT INFORMATION
  Report Type: Spontaneous
  Country: US (occurrence: None)
  Receive Date: 20220512
  Receipt Date: 20220512
  Transmission Date: 20220721
  Serious: No
  Sender: FDA-Public Use
  Company Number: None

PATIENT
  Age: 25 Year
  Sex: Female
  Weight: 73.03 kg

DRUGS (1)
  1. GLATIRAMER [Suspect]
     Active Substance: GLATIRAMER
     Dosage: FREQUENCY : 3 TIMES A WEEK;?

REACTIONS (2)
  - Burning sensation [None]
  - Injection site pain [None]

NARRATIVE: CASE EVENT DATE: 20220216
